FAERS Safety Report 13550472 (Version 1)
Quarter: 2017Q2

REPORT INFORMATION
  Report Type: Spontaneous
  Country: US (occurrence: US)
  Receive Date: 20170516
  Receipt Date: 20170516
  Transmission Date: 20170830
  Serious: Yes (Hospitalization)
  Sender: FDA-Public Use
  Company Number: None

PATIENT
  Age: 78 Year
  Sex: Female
  Weight: 80.9 kg

DRUGS (11)
  1. COREG [Concomitant]
     Active Substance: CARVEDILOL
  2. ATARAX [Concomitant]
     Active Substance: HYDROXYZINE HYDROCHLORIDE
  3. VITAMIN D3 [Concomitant]
     Active Substance: CHOLECALCIFEROL
  4. PHOSLO [Concomitant]
     Active Substance: CALCIUM ACETATE
  5. AMLODIPINE [Concomitant]
     Active Substance: AMLODIPINE BESYLATE
  6. KLONOPIN [Concomitant]
     Active Substance: CLONAZEPAM
  7. IBUPROFEN. [Suspect]
     Active Substance: IBUPROFEN
     Indication: BACK PAIN
     Dosage: DATES OF USE - RECENT
     Route: 048
  8. COLACE [Concomitant]
     Active Substance: DOCUSATE SODIUM
  9. LEXAPRO [Concomitant]
     Active Substance: ESCITALOPRAM OXALATE
  10. EMLA [Concomitant]
     Active Substance: LIDOCAINE\PRILOCAINE
  11. REGLAN [Concomitant]
     Active Substance: METOCLOPRAMIDE HYDROCHLORIDE

REACTIONS (2)
  - Gastric ulcer haemorrhage [None]
  - Anaemia [None]

NARRATIVE: CASE EVENT DATE: 20160313
